FAERS Safety Report 14700237 (Version 1)
Quarter: 2018Q1

REPORT INFORMATION
  Report Type: Spontaneous
  Country: FR (occurrence: FR)
  Receive Date: 20180330
  Receipt Date: 20180330
  Transmission Date: 20180509
  Serious: Yes (Other)
  Sender: FDA-Public Use
  Company Number: FR-GILEAD-2018-0329574

PATIENT
  Age: 55 Year
  Sex: Female
  Weight: 53.5 kg

DRUGS (1)
  1. EPCLUSA [Suspect]
     Active Substance: SOFOSBUVIR\VELPATASVIR
     Indication: HEPATITIS C
     Dosage: 1 DF, UNK
     Route: 048
     Dates: start: 20170510, end: 20170801

REACTIONS (3)
  - Anxiety [Unknown]
  - Sleep disorder [Unknown]
  - Irritability [Unknown]

NARRATIVE: CASE EVENT DATE: 20170524
